FAERS Safety Report 7027060-6 (Version None)
Quarter: 2010Q4

REPORT INFORMATION
  Report Type: 
  Country: None (occurrence: None)
  Receive Date: 20101004
  Receipt Date: 20100922
  Transmission Date: 20110411
  Serious: Yes (Hospitalization)
  Sender: FDA-Public Use
  Company Number: US-JNJFOC-20100900225

PATIENT
  Sex: Female
  Weight: 75.3 kg

DRUGS (15)
  1. REMICADE [Suspect]
     Indication: PSORIATIC ARTHROPATHY
     Route: 042
  2. REMICADE [Suspect]
     Route: 042
  3. TYLENOL [Concomitant]
     Indication: PREMEDICATION
     Route: 048
  4. CLARITIN [Concomitant]
     Indication: PREMEDICATION
     Route: 048
  5. METHOTREXATE [Concomitant]
     Dosage: 4 TABLETS WEEKLY
     Route: 048
  6. METHOTREXATE [Concomitant]
     Dosage: 6 TABLETS WEEKLY
     Route: 048
  7. ALENDRONATE SODIUM [Concomitant]
     Route: 048
  8. ADVAIR DISKUS 100/50 [Concomitant]
  9. AVELOX [Concomitant]
     Dosage: FOR 7 DAYS
     Route: 048
  10. AVELOX [Concomitant]
     Route: 048
  11. METOPROLOL TARTRATE [Concomitant]
     Route: 048
  12. LORAZEPAM [Concomitant]
     Route: 048
  13. OMEPRAZOLE [Concomitant]
  14. CALCIUM [Concomitant]
  15. VITAMIN D [Concomitant]

REACTIONS (9)
  - ATRIAL FIBRILLATION [None]
  - BRONCHIAL HYPERREACTIVITY [None]
  - BRONCHITIS [None]
  - DYSTHYMIC DISORDER [None]
  - GUILLAIN-BARRE SYNDROME [None]
  - MILLER FISHER SYNDROME [None]
  - POLYNEUROPATHY IDIOPATHIC PROGRESSIVE [None]
  - VITAMIN B12 DEFICIENCY [None]
  - VITAMIN D DEFICIENCY [None]
